FAERS Safety Report 13245009 (Version 3)
Quarter: 2017Q1

REPORT INFORMATION
  Report Type: Spontaneous
  Country: US (occurrence: US)
  Receive Date: 20170217
  Receipt Date: 20170322
  Transmission Date: 20170428
  Serious: No
  Sender: FDA-Public Use
  Company Number: US-GLAXOSMITHKLINE-US2017GSK022043

PATIENT
  Sex: Male
  Weight: 99.32 kg

DRUGS (1)
  1. LOVAZA [Suspect]
     Active Substance: OMEGA-3-ACID ETHYL ESTERS
     Indication: PRODUCT USED FOR UNKNOWN INDICATION
     Dosage: 1 DF, QID
     Dates: start: 20120905, end: 20170111

REACTIONS (3)
  - Product odour abnormal [Unknown]
  - Product taste abnormal [Unknown]
  - Product quality issue [Unknown]
